FAERS Safety Report 6766599-5 (Version None)
Quarter: 2010Q2

REPORT INFORMATION
  Report Type: 
  Country: None (occurrence: None)
  Receive Date: 20100611
  Receipt Date: 20100601
  Transmission Date: 20101027
  Serious: Yes (Other)
  Sender: FDA-Public Use
  Company Number: US-JNJFOC-20100300335

PATIENT
  Sex: Female
  Weight: 86.64 kg

DRUGS (11)
  1. REMICADE [Suspect]
     Indication: CROHN'S DISEASE
     Dosage: 38 INFUSIONS TOTAL
     Route: 042
  2. LISINOPRIL [Suspect]
     Indication: DRUG USE FOR UNKNOWN INDICATION
  3. GABAPENTIN [Concomitant]
  4. INDAPAMIDE [Concomitant]
  5. KLOR-CON [Concomitant]
  6. LOPID [Concomitant]
  7. TINCTURE OF OPIUM [Concomitant]
  8. PAXIL [Concomitant]
  9. SYNTHROID [Concomitant]
  10. VITAMIN B-12 [Concomitant]
     Route: 050
  11. WELCHOL [Concomitant]

REACTIONS (10)
  - ATELECTASIS [None]
  - AUTOIMMUNE HEPATITIS [None]
  - COUGH [None]
  - DEPRESSION [None]
  - INFLUENZA LIKE ILLNESS [None]
  - LUNG INFILTRATION [None]
  - LYMPHADENOPATHY [None]
  - MUSCULOSKELETAL CHEST PAIN [None]
  - PROCEDURAL PAIN [None]
  - PYREXIA [None]
